FAERS Safety Report 9822123 (Version 1)
Quarter: 2014Q1

REPORT INFORMATION
  Report Type: Spontaneous
  Country: CA (occurrence: CA)
  Receive Date: 20140116
  Receipt Date: 20140116
  Transmission Date: 20141002
  Serious: Yes (Other)
  Sender: FDA-Public Use
  Company Number: CA-GLAXOSMITHKLINE-A1056229A

PATIENT
  Age: 67 Year
  Sex: Male

DRUGS (3)
  1. ADVAIR [Suspect]
     Indication: CHRONIC OBSTRUCTIVE PULMONARY DISEASE
     Dosage: 1PUFF TWICE PER DAY
     Route: 055
     Dates: start: 2012
  2. ASA [Concomitant]
  3. VENTOLIN [Concomitant]

REACTIONS (5)
  - Pneumonia [Recovering/Resolving]
  - Productive cough [Recovering/Resolving]
  - Increased upper airway secretion [Recovering/Resolving]
  - Dyspnoea exertional [Recovering/Resolving]
  - Vision blurred [Recovered/Resolved]
